FAERS Safety Report 10612736 (Version 1)
Quarter: 2014Q4

REPORT INFORMATION
  Report Type: Spontaneous
  Country: US (occurrence: US)
  Receive Date: 20141127
  Receipt Date: 20141127
  Transmission Date: 20150529
  Serious: No
  Sender: FDA-Public Use
  Company Number: US-009507513-1411USA004162

PATIENT
  Age: 25 Year
  Sex: Female
  Weight: 61.22 kg

DRUGS (1)
  1. NUVARING [Suspect]
     Active Substance: ETHINYL ESTRADIOL\ETONOGESTREL
     Indication: CONTRACEPTION
     Dosage: STRENGTH: 0.12/0.015/24 MG, 3 WEEK IN/1 WEEK OUT
     Route: 067
     Dates: start: 20141029

REACTIONS (3)
  - Vaginal discharge [Recovering/Resolving]
  - Product quality issue [Unknown]
  - Device expulsion [Recovering/Resolving]

NARRATIVE: CASE EVENT DATE: 2014
